FAERS Safety Report 7024069-3 (Version None)
Quarter: 2010Q4

REPORT INFORMATION
  Report Type: 
  Country: None (occurrence: None)
  Receive Date: 20101001
  Receipt Date: 20100922
  Transmission Date: 20110411
  Serious: Yes (Hospitalization, Other)
  Sender: FDA-Public Use
  Company Number: JP-ASTRAZENECA-2010SE45636

PATIENT
  Age: 81 Year
  Sex: Female

DRUGS (5)
  1. OMEPRAZOLE [Suspect]
     Route: 048
     Dates: end: 20100912
  2. FUROSEMIDE [Suspect]
     Route: 048
  3. FUROSEMIDE [Suspect]
     Route: 042
  4. DIGOXIN [Concomitant]
     Route: 065
  5. WARFARIN SODIUM [Concomitant]
     Route: 048

REACTIONS (2)
  - CARDIAC FAILURE [None]
  - PANCYTOPENIA [None]
